FAERS Safety Report 7763383-0 (Version None)
Quarter: 2011Q3

REPORT INFORMATION
  Report Type: 
  Country: None (occurrence: None)
  Receive Date: 20110920
  Receipt Date: 20110916
  Transmission Date: 20111222
  Serious: Yes (Hospitalization)
  Sender: FDA-Public Use
  Company Number: US-CEPHALON-2011001927

PATIENT
  Sex: Male
  Weight: 105 kg

DRUGS (14)
  1. REVLIMID [Suspect]
     Indication: MULTIPLE MYELOMA
     Dates: start: 20101101
  2. POTASSIUM CHLORIDE [Concomitant]
  3. GABAPENTIN [Concomitant]
  4. TREANDA [Suspect]
     Indication: MULTIPLE MYELOMA
     Route: 041
     Dates: start: 20101101
  5. COUMADIN [Concomitant]
     Dates: start: 20101201
  6. MECLIZINE [Concomitant]
     Dates: start: 20100902
  7. HYDROCODONE BITARTRATE AND ACETAMINOPHEN [Concomitant]
  8. DEXAMETHASONE [Suspect]
     Indication: MULTIPLE MYELOMA
     Dates: start: 20101101
  9. FLOMAX [Concomitant]
  10. GLIPIZIDE [Concomitant]
  11. ASPIRIN [Concomitant]
     Dates: start: 20101101
  12. MIDODRINE HYDROCHLORIDE [Concomitant]
  13. SENOKOT [Concomitant]
  14. INSULIN [Concomitant]
     Dates: start: 20101230

REACTIONS (3)
  - CYTOMEGALOVIRUS INFECTION [None]
  - RESPIRATORY DISTRESS [None]
  - PULMONARY OEDEMA [None]
